FAERS Safety Report 6252156-6 (Version None)
Quarter: 2009Q2

REPORT INFORMATION
  Report Type: 
  Country: None (occurrence: None)
  Receive Date: 20090630
  Receipt Date: 20061201
  Transmission Date: 20091009
  Serious: Yes (Hospitalization)
  Sender: FDA-Public Use
  Company Number: US-ROCHE-639477

PATIENT
  Sex: Male

DRUGS (24)
  1. ENFUVIRTIDE [Suspect]
     Route: 065
     Dates: start: 20050308, end: 20060101
  2. NORVIR [Concomitant]
     Dosage: FREQUENCY REPORTED AS QD
     Dates: start: 20020212, end: 20050920
  3. NORVIR [Concomitant]
     Dates: start: 20050920, end: 20060701
  4. NORVIR [Concomitant]
     Dates: start: 20070301, end: 20070301
  5. NORVIR [Concomitant]
     Dates: start: 20080707, end: 20080814
  6. VIDEX EC [Concomitant]
     Dosage: FREQUENCY REPORTED QD
     Dates: start: 20020517, end: 20070301
  7. VIDEX EC [Concomitant]
     Dosage: FREQUENCY REPORTED AS QD
     Dates: start: 20080707, end: 20080814
  8. VIREAD [Concomitant]
     Dates: start: 20020517, end: 20060701
  9. EMTRIVA [Concomitant]
     Dates: start: 20040331, end: 20050901
  10. EMTRIVA [Concomitant]
     Dates: start: 20060308, end: 20070301
  11. EMTRIVA [Concomitant]
     Dates: start: 20080707, end: 20080814
  12. LEXIVA [Concomitant]
     Dates: start: 20040407, end: 20050920
  13. APTIVUS [Concomitant]
     Dates: start: 20050920, end: 20060701
  14. EPIVIR [Concomitant]
     Dates: start: 20050920, end: 20060710
  15. EMTRIVA [Concomitant]
     Dates: start: 20060308, end: 20070301
  16. EMTRIVA [Concomitant]
     Dates: start: 20080707, end: 20080814
  17. ZERIT [Concomitant]
     Dates: start: 20060710, end: 20070301
  18. ZERIT [Concomitant]
     Dates: start: 20080707, end: 20080814
  19. PREZISTA [Concomitant]
     Dates: start: 20070301, end: 20070301
  20. PREZISTA [Concomitant]
     Dates: start: 20080707, end: 20080814
  21. ATOVAQUONE [Concomitant]
     Dates: start: 20050603, end: 20050101
  22. ZITHROMAX [Concomitant]
     Dosage: FREQUENCY REPORTED AS Q WK
     Dates: start: 20051201, end: 20080814
  23. DOXYCYCLINE [Concomitant]
     Dates: start: 20061011, end: 20061001
  24. DIFLUCAN [Concomitant]
     Dates: start: 20070615, end: 20070630

REACTIONS (1)
  - WOUND INFECTION [None]
